FAERS Safety Report 5001625-5 (Version None)
Quarter: 2006Q2

REPORT INFORMATION
  Report Type: 
  Country: None (occurrence: None)
  Receive Date: 20060511
  Receipt Date: 20060511
  Transmission Date: 20061013
  Serious: Yes (Hospitalization, Other)
  Sender: FDA-Public Use
  Company Number: None

PATIENT
  Sex: Female
  Weight: 104 kg

DRUGS (4)
  1. CISPLATIN [Suspect]
     Indication: ADENOCARCINOMA OF THE CERVIX
     Dosage: 100 MG
     Dates: start: 20050623, end: 20050630
  2. ERBITUX [Suspect]
     Dosage: 1500 MG
     Dates: start: 20050623, end: 20050707
  3. EFFEXOR [Concomitant]
  4. KLONOPIN [Concomitant]

REACTIONS (3)
  - FEAR [None]
  - PULMONARY EMBOLISM [None]
  - WHEEZING [None]
